FAERS Safety Report 23036429 (Version 3)
Quarter: 2023Q4

REPORT INFORMATION
  Report Type: Spontaneous
  Country: JP (occurrence: JP)
  Receive Date: 20231006
  Receipt Date: 20231107
  Transmission Date: 20240109
  Serious: Yes (Death, Hospitalization, Other)
  Sender: FDA-Public Use
  Company Number: JP-BRISTOL-MYERS SQUIBB COMPANY-2023-140426

PATIENT
  Age: 84 Year
  Sex: Male

DRUGS (4)
  1. ELIQUIS [Suspect]
     Active Substance: APIXABAN
     Indication: Thrombosis prophylaxis
     Dosage: ELIQUIS TABLETS 5 MG,10MG/DAY
     Route: 048
  2. ELIQUIS [Suspect]
     Active Substance: APIXABAN
     Dosage: FROM AN UNSPECIFIED DATE IN Y MONTH OF YEAR X(DAY 6) ,ELIQUIS TABLETS 2.5 MG, 5 MG PER DAY VIA GASTR
     Route: 050
  3. HEPARIN [Suspect]
     Active Substance: HEPARIN SODIUM
     Indication: Embolism
  4. CLOPIDOGREL [Suspect]
     Active Substance: CLOPIDOGREL BISULFATE
     Indication: Embolism
     Dosage: FROM AN UNSPECIFIED DATE IN Y MONTH OF YEAR X(DAY 6) , 75MG PER DAY VIA GASTRIC TUBE
     Route: 050

REACTIONS (5)
  - Death [Fatal]
  - Arterial haemorrhage [Not Recovered/Not Resolved]
  - Haemorrhage subcutaneous [Not Recovered/Not Resolved]
  - Altered state of consciousness [Not Recovered/Not Resolved]
  - Peripheral swelling [Unknown]
